FAERS Safety Report 7928647-6 (Version None)
Quarter: 2011Q4

REPORT INFORMATION
  Report Type: 
  Country: None (occurrence: None)
  Receive Date: 20111118
  Receipt Date: 20111114
  Transmission Date: 20120403
  Serious: Yes (Other)
  Sender: FDA-Public Use
  Company Number: AU-ABBOTT-11P-008-0874111-00

PATIENT
  Age: 87 Year
  Sex: Female

DRUGS (11)
  1. ATACAND [Suspect]
     Indication: ESSENTIAL HYPERTENSION
     Route: 048
     Dates: start: 20110330
  2. LEVOTHYROXINE SODIUM [Suspect]
     Indication: MYXOEDEMA
     Route: 048
  3. TENORMIN [Suspect]
     Indication: ESSENTIAL HYPERTENSION
     Route: 048
     Dates: start: 20110316
  4. ZOCOR [Concomitant]
     Indication: PRODUCT USED FOR UNKNOWN INDICATION
  5. PERINDOPRIL ERBUMINE [Suspect]
     Indication: ESSENTIAL HYPERTENSION
     Route: 048
     Dates: start: 20110330
  6. AMOXIL [Concomitant]
     Indication: PRODUCT USED FOR UNKNOWN INDICATION
  7. HYGROTON [Suspect]
     Indication: ESSENTIAL HYPERTENSION
     Route: 048
     Dates: start: 20110330
  8. LERCANIDIPINE [Suspect]
     Indication: ESSENTIAL HYPERTENSION
     Route: 048
  9. ASPIRIN [Concomitant]
     Indication: PRODUCT USED FOR UNKNOWN INDICATION
  10. METHYLDOPA [Suspect]
     Indication: ESSENTIAL HYPERTENSION
     Route: 048
     Dates: start: 20110316
  11. AMIODARONE HYDROCHLORIDE [Suspect]
     Indication: ARRHYTHMIA
     Route: 048
     Dates: start: 20110330

REACTIONS (4)
  - SYNCOPE [None]
  - NAUSEA [None]
  - DIZZINESS [None]
  - ORTHOSTATIC HYPOTENSION [None]
